FAERS Safety Report 22664966 (Version 3)
Quarter: 2024Q1

REPORT INFORMATION
  Report Type: Spontaneous
  Country: US (occurrence: US)
  Receive Date: 20230703
  Receipt Date: 20240205
  Transmission Date: 20240410
  Serious: No
  Sender: FDA-Public Use
  Company Number: US-UCBSA-2023024914

PATIENT
  Age: 40 Year
  Sex: Female

DRUGS (15)
  1. LEVETIRACETAM [Suspect]
     Active Substance: LEVETIRACETAM
     Indication: Partial seizures
     Dosage: 1500 MILLIGRAM
  2. LEVETIRACETAM [Suspect]
     Active Substance: LEVETIRACETAM
     Dosage: 60 MILLIGRAM/KILOGRAM
  3. LACOSAMIDE [Suspect]
     Active Substance: LACOSAMIDE
     Indication: Partial seizures
     Dosage: 300 MILLIGRAM
  4. MIDAZOLAM [Suspect]
     Active Substance: MIDAZOLAM
     Indication: Partial seizures
     Dosage: 2 MILLIGRAM
  5. MIDAZOLAM [Suspect]
     Active Substance: MIDAZOLAM
     Dosage: 1 MILLIGRAM/KILOGRAM
  6. PROPOFOL [Suspect]
     Active Substance: PROPOFOL
     Indication: Partial seizures
     Dosage: 60 ?G/KG/MIN
  7. KETAMINE [Suspect]
     Active Substance: KETAMINE
     Indication: Partial seizures
     Dosage: 4 MG/KG/H
  8. SIROLIMUS [Concomitant]
     Active Substance: SIROLIMUS
     Indication: Liver transplant rejection
     Dosage: 7 MILLIGRAM
  9. TACROLIMUS [Concomitant]
     Active Substance: TACROLIMUS
     Indication: Liver transplant rejection
     Dosage: UNK
  10. PREGABALIN [Concomitant]
     Active Substance: PREGABALIN
     Indication: Anxiety
     Dosage: 75 MILLIGRAM
  11. SERTRALINE [Concomitant]
     Active Substance: SERTRALINE HYDROCHLORIDE
     Indication: Product used for unknown indication
     Dosage: 150 MILLIGRAM
  12. MYCOPHENOLIC ACID [Concomitant]
     Active Substance: MYCOPHENOLIC ACID
     Indication: Product used for unknown indication
     Dosage: 2000 MILLIGRAM
  13. MELATONIN [Concomitant]
     Active Substance: MELATONIN
     Indication: Product used for unknown indication
     Dosage: 5 MILLIGRAM
  14. QUETIAPINE [Concomitant]
     Active Substance: QUETIAPINE
     Indication: Product used for unknown indication
     Dosage: 100 MILLIGRAM
  15. DEXMEDETOMIDINE [Concomitant]
     Active Substance: DEXMEDETOMIDINE
     Indication: Product used for unknown indication
     Dosage: MAINTENANCE DOSE1.2 MICROGRAM/KILOGRAM/ HOUR

REACTIONS (1)
  - Multiple-drug resistance [Unknown]
